FAERS Safety Report 7822697 (Version 7)
Quarter: 2012Q4

REPORT INFORMATION
  Report Type: Report from Study
  Country: SE (occurrence: SE)
  Receive Date: 20110223
  Receipt Date: 20121216
  Transmission Date: 20130627
  Serious: Yes (Hospitalization, Other)
  Sender: FDA-Public Use
  Company Number: US-BRISTOL-MYERS SQUIBB COMPANY-15556822

PATIENT
  Age: 72 Year
  Sex: Female

DRUGS (10)
  1. BLINDED: SAXAGLIPTIN [Suspect]
     Indication: TYPE 2 DIABETES MELLITUS
     Dosage: 1 df= 2.5mg or 5 mg
     Dates: start: 20101026
  2. METFORMIN HCL [Suspect]
     Indication: DIABETES MELLITUS
  3. INSULIN HUMAN [Suspect]
     Indication: DIABETES MELLITUS
     Dosage: Before randamization-28Nov10,29Nov10-14Jul11(22IU) 15Jul11-22Apr12 26IU;23Apr12-ong 28IU
  4. BLINDED: PLACEBO [Suspect]
     Indication: TYPE 2 DIABETES MELLITUS
     Dates: start: 20101026
  5. VAGIFEM [Concomitant]
     Indication: BLOOD OESTROGEN DECREASED
     Route: 067
  6. TIMOLOL MALEATE [Concomitant]
     Indication: GLAUCOMA
     Dosage: Timosan
     Route: 047
  7. FESOTERODINE [Concomitant]
     Indication: URINARY INCONTINENCE
     Route: 048
  8. SPIRIVA [Concomitant]
     Route: 055
  9. ALVEDON [Concomitant]
     Indication: PAIN
     Route: 048
  10. ASPIRIN [Concomitant]
     Dosage: 1df:}100mg

REACTIONS (2)
  - Gastroenteritis cryptosporidial [Recovered/Resolved]
  - Femoral artery occlusion [Recovered/Resolved]
